FAERS Safety Report 14124910 (Version 1)
Quarter: 2017Q4

REPORT INFORMATION
  Report Type: Spontaneous
  Country: FR (occurrence: FR)
  Receive Date: 20171025
  Receipt Date: 20171025
  Transmission Date: 20180321
  Serious: Yes (Hospitalization)
  Sender: FDA-Public Use
  Company Number: FR-MALLINCKRODT-T201704126

PATIENT
  Age: 42 Year
  Sex: Male
  Weight: 74 kg

DRUGS (5)
  1. ANAFRANIL [Suspect]
     Active Substance: CLOMIPRAMINE HYDROCHLORIDE
     Indication: DEPRESSION
     Dosage: 150 MG
     Route: 048
     Dates: start: 201706
  2. DEPAMIDE [Concomitant]
     Active Substance: VALPROMIDE
     Indication: DEPRESSION
     Dosage: 1200 MG
     Dates: start: 201703
  3. BROMAZEPAM [Concomitant]
     Active Substance: BROMAZEPAM
     Indication: DEPRESSION
     Dosage: 4.5 MG
     Route: 048
     Dates: start: 201604
  4. NALMEFENE [Suspect]
     Active Substance: NALMEFENE
     Indication: ALCOHOLISM
     Dosage: 18 MG QD
     Route: 048
     Dates: start: 20170413
  5. PAROXETINE. [Concomitant]
     Active Substance: PAROXETINE
     Indication: DEPRESSION
     Dosage: UNK
     Dates: start: 201604

REACTIONS (2)
  - Suicide attempt [Recovering/Resolving]
  - Drug intolerance [Unknown]
